FAERS Safety Report 16601875 (Version 4)
Quarter: 2019Q3

REPORT INFORMATION
  Report Type: Spontaneous
  Country: CO (occurrence: CO)
  Receive Date: 20190719
  Receipt Date: 20190801
  Transmission Date: 20191004
  Serious: Yes (Hospitalization, Other)
  Sender: FDA-Public Use
  Company Number: CO-BIOMARINAP-CO-2019-124779

PATIENT
  Sex: Female
  Weight: 27 kg

DRUGS (2)
  1. VIMIZIM [Suspect]
     Active Substance: ELOSULFASE ALFA
     Indication: MUCOPOLYSACCHARIDOSIS IV
     Dosage: 55 MILLIGRAM, QW
     Route: 042
     Dates: start: 20151020
  2. VIMIZIM [Suspect]
     Active Substance: ELOSULFASE ALFA
     Dosage: 55 MILLIGRAM
     Route: 065
     Dates: start: 20190517

REACTIONS (13)
  - Dizziness [Not Recovered/Not Resolved]
  - Discomfort [Not Recovered/Not Resolved]
  - Mastoiditis [Not Recovered/Not Resolved]
  - Infection [Unknown]
  - Pain [Unknown]
  - Discharge [Unknown]
  - Vomiting [Not Recovered/Not Resolved]
  - Nausea [Not Recovered/Not Resolved]
  - Ear pain [Not Recovered/Not Resolved]
  - Ear infection [Unknown]
  - Inflammation [Not Recovered/Not Resolved]
  - Ear neoplasm [Unknown]
  - Pyrexia [Not Recovered/Not Resolved]
